FAERS Safety Report 21921233 (Version 2)
Quarter: 2023Q2

REPORT INFORMATION
  Report Type: Spontaneous
  Country: US (occurrence: US)
  Receive Date: 20230127
  Receipt Date: 20230628
  Transmission Date: 20230721
  Serious: Yes (Other)
  Sender: FDA-Public Use
  Company Number: US-JNJFOC-20230148469

PATIENT
  Sex: Male

DRUGS (2)
  1. TYLENOL REGULAR STRENGTH [Suspect]
     Active Substance: ACETAMINOPHEN
     Indication: Product used for unknown indication
     Dosage: FROM UNSPECIFIED DATES IN FEB-2012 TO OCT-2012, THE PATIENTS MOTHER TOOK TYLENOL REGULAR TABLETS 32
     Route: 064
     Dates: start: 201202, end: 201210
  2. TYLENOL EXTRA STRENGTH [Suspect]
     Active Substance: ACETAMINOPHEN
     Indication: Product used for unknown indication
     Dosage: FROM UNSPECIFIED DATES IN FEB-2012 TO OCT-2012, THE PATIENTS MOTHER TOOK TYLENOL EXTRA STRENGTH TAB
     Route: 064
     Dates: start: 201202, end: 201210

REACTIONS (2)
  - Autism spectrum disorder [Unknown]
  - Foetal exposure during pregnancy [Unknown]

NARRATIVE: CASE EVENT DATE: 20120101
